FAERS Safety Report 5092240-6 (Version None)
Quarter: 2006Q3

REPORT INFORMATION
  Report Type: 
  Country: None (occurrence: None)
  Receive Date: 20060828
  Receipt Date: 20060828
  Transmission Date: 20061208
  Serious: No
  Sender: FDA-Public Use
  Company Number: None

PATIENT
  Age: 17 Year
  Sex: Male
  Weight: 63.5036 kg

DRUGS (2)
  1. PROZAC [Suspect]
     Indication: ANXIETY
     Dosage: 20MG DAILY PO
     Route: 048
  2. PROZAC [Suspect]
     Indication: DEPRESSION
     Dosage: 20MG DAILY PO
     Route: 048

REACTIONS (12)
  - ANXIETY [None]
  - DEPRESSION [None]
  - DISINHIBITION [None]
  - DISTURBANCE IN ATTENTION [None]
  - DRY MOUTH [None]
  - ERECTILE DYSFUNCTION [None]
  - FEELING ABNORMAL [None]
  - LOSS OF LIBIDO [None]
  - PARAESTHESIA [None]
  - SLEEP DISORDER [None]
  - SOMNOLENCE [None]
  - TREATMENT NONCOMPLIANCE [None]
